FAERS Safety Report 4588043-9 (Version None)
Quarter: 2005Q1

REPORT INFORMATION
  Report Type: 
  Country: None (occurrence: None)
  Receive Date: 20050216
  Receipt Date: 20050131
  Transmission Date: 20050727
  Serious: Yes (Death)
  Sender: FDA-Public Use
  Company Number: GBS050216529

PATIENT
  Sex: Male

DRUGS (10)
  1. OLANZAPINE [Suspect]
     Dosage: 10 MG DAY
  2. RISPERDAL [Concomitant]
  3. TRAZODONE HCL [Concomitant]
  4. LIPOSTAT (PRAVASTATIN SODIUM) [Concomitant]
  5. TENORMIN (ATENOLOL EG) [Concomitant]
  6. TRITACE (RAMIPRIL DURA) [Concomitant]
  7. ASPIRIN [Concomitant]
  8. DIGOXIN [Concomitant]
  9. ATROVENT [Concomitant]
  10. WARFARIN SODIUM [Concomitant]

REACTIONS (5)
  - AUTONOMIC NEUROPATHY [None]
  - GASTRIC DILATATION [None]
  - INTESTINAL DILATATION [None]
  - PNEUMONIA [None]
  - SEPSIS [None]
